FAERS Safety Report 10555217 (Version 2)
Quarter: 2014Q4

REPORT INFORMATION
  Report Type: Spontaneous
  Country: US (occurrence: US)
  Receive Date: 20141030
  Receipt Date: 20141105
  Transmission Date: 20150529
  Serious: No
  Sender: FDA-Public Use
  Company Number: US-TEVA-519011USA

PATIENT
  Age: 64 Year
  Sex: Female

DRUGS (10)
  1. NEURONTIN [Concomitant]
     Active Substance: GABAPENTIN
  2. PROLIA [Concomitant]
     Active Substance: DENOSUMAB
  3. SUCRALFATE. [Concomitant]
     Active Substance: SUCRALFATE
  4. BACLOFEN. [Concomitant]
     Active Substance: BACLOFEN
  5. RANITIDINE [Concomitant]
     Active Substance: RANITIDINE\RANITIDINE HYDROCHLORIDE
  6. TRAMADOL [Concomitant]
     Active Substance: TRAMADOL
  7. DIAZEPAM. [Concomitant]
     Active Substance: DIAZEPAM
  8. NUVIGIL [Suspect]
     Active Substance: ARMODAFINIL
     Indication: FATIGUE
     Dosage: SPLIT TABLET FOR 75 MG
     Dates: start: 201408
  9. NUVIGIL [Suspect]
     Active Substance: ARMODAFINIL
     Indication: MULTIPLE SCLEROSIS
     Dosage: SPLIT TABLET FOR 125 MG
     Dates: start: 201409
  10. NUVIGIL [Suspect]
     Active Substance: ARMODAFINIL
     Dosage: SPLIT TABLET
     Dates: start: 201409

REACTIONS (5)
  - Tremor [Recovered/Resolved]
  - Product use issue [Unknown]
  - Fatigue [Not Recovered/Not Resolved]
  - Weight decreased [Unknown]
  - Disturbance in attention [Not Recovered/Not Resolved]

NARRATIVE: CASE EVENT DATE: 201409
